FAERS Safety Report 8308638-6 (Version None)
Quarter: 2012Q2

REPORT INFORMATION
  Report Type: 
  Country: None (occurrence: None)
  Receive Date: 20120424
  Receipt Date: 20100303
  Transmission Date: 20120825
  Serious: Yes (Other)
  Sender: FDA-Public Use
  Company Number: US-TEVA-2010001308

PATIENT
  Sex: Male
  Weight: 77.18 kg

DRUGS (3)
  1. PROVIGIL [Suspect]
     Indication: CIRCADIAN RHYTHM SLEEP DISORDER
     Route: 048
     Dates: start: 20080101, end: 20080101
  2. VIAGRA [Concomitant]
  3. LISINOPRIL [Concomitant]
     Indication: HYPERTENSION
     Dosage: 10 MILLIGRAM;
     Dates: start: 20050101

REACTIONS (5)
  - AGGRESSION [None]
  - MANIA [None]
  - DRUG DIVERSION [None]
  - DELUSION [None]
  - PSYCHOTIC DISORDER [None]
